FAERS Safety Report 16505351 (Version 1)
Quarter: 2019Q3

REPORT INFORMATION
  Report Type: Spontaneous
  Country: US (occurrence: US)
  Receive Date: 20190701
  Receipt Date: 20190701
  Transmission Date: 20191004
  Serious: No
  Sender: FDA-Public Use
  Company Number: US-PERRIGO-18US010121

PATIENT
  Age: 74 Year
  Sex: Female
  Weight: 104.76 kg

DRUGS (13)
  1. TYLENOL [Concomitant]
     Active Substance: ACETAMINOPHEN
     Indication: ARTHRITIS
     Dosage: 1300 MG, QD, PRN
     Route: 048
  2. POLYETHYLENE GLYCOL 3350. [Suspect]
     Active Substance: POLYETHYLENE GLYCOL 3350
     Indication: CONSTIPATION
     Dosage: 17 G, SINGLE
     Route: 048
     Dates: start: 20180906, end: 20180906
  3. POLYETHYLENE GLYCOL 3350. [Suspect]
     Active Substance: POLYETHYLENE GLYCOL 3350
     Dosage: 17 G, SINGLE
     Route: 048
     Dates: start: 20180908, end: 20180908
  4. BACLOFEN. [Concomitant]
     Active Substance: BACLOFEN
     Indication: HYPOTONIA
     Dosage: TWO 10 MG TABLETS DAILY IF NEEDED
     Route: 048
     Dates: start: 2015
  5. KRILL OIL [Concomitant]
     Active Substance: DIETARY SUPPLEMENT\KRILL OIL
     Indication: ROUTINE HEALTH MAINTENANCE
     Dosage: 750 MG TO 1000 MG, QD
     Route: 048
  6. TRIAMTERENE. [Concomitant]
     Active Substance: TRIAMTERENE
     Indication: HYPERTENSION
     Dosage: 75/50
     Route: 048
  7. POLYETHYLENE GLYCOL 3350. [Suspect]
     Active Substance: POLYETHYLENE GLYCOL 3350
     Dosage: 17 G, SINGLE
     Route: 048
     Dates: start: 20180917, end: 20180917
  8. VITAMIN D3 BON [Concomitant]
     Indication: ROUTINE HEALTH MAINTENANCE
     Dosage: 2000 IU
     Route: 048
  9. ASTAXANTHIN [Concomitant]
     Active Substance: ASTAXANTHIN
     Indication: SUPPLEMENTATION THERAPY
     Dosage: 12 MG
     Route: 048
  10. EMERGEN C [Concomitant]
     Active Substance: MINERALS\VITAMINS
     Indication: SPINAL STENOSIS
     Dosage: ONE PACK, QD
     Route: 048
  11. PROBIOTICS NOS [Concomitant]
     Active Substance: PROBIOTICS NOS
     Indication: IRRITABLE BOWEL SYNDROME
     Dosage: UNK
     Route: 048
  12. MAGNESIUM [Concomitant]
     Active Substance: MAGNESIUM
     Indication: OSTEOPOROSIS
     Dosage: 300 MG, QD
     Route: 048
  13. LEVOTHYROXINE. [Concomitant]
     Active Substance: LEVOTHYROXINE
     Indication: THYROIDECTOMY
     Dosage: 10 MCG
     Route: 048
     Dates: start: 2015

REACTIONS (1)
  - Blood pressure increased [Recovered/Resolved]

NARRATIVE: CASE EVENT DATE: 20180906
